FAERS Safety Report 5771870-X (Version None)
Quarter: 2008Q2

REPORT INFORMATION
  Report Type: 
  Country: None (occurrence: None)
  Receive Date: 20080613
  Receipt Date: 20080609
  Transmission Date: 20081010
  Serious: Yes (Hospitalization)
  Sender: FDA-Public Use
  Company Number: B0521579A

PATIENT
  Age: 12 Year
  Sex: Female
  Weight: 54 kg

DRUGS (5)
  1. RELENZA [Suspect]
     Indication: INFLUENZA
     Dosage: 10MG TWICE PER DAY
     Route: 055
     Dates: start: 20080516, end: 20080517
  2. RELENZA [Suspect]
     Dosage: 10MG PER DAY
     Route: 055
     Dates: start: 20080518, end: 20080519
  3. CALONAL [Concomitant]
     Route: 065
     Dates: start: 20080515
  4. MEDICON [Concomitant]
     Route: 048
     Dates: start: 20080515
  5. FLOMOX [Concomitant]
     Route: 048
     Dates: start: 20080515

REACTIONS (6)
  - ABNORMAL BEHAVIOUR [None]
  - FEELING ABNORMAL [None]
  - HYPERKINESIA [None]
  - HYPERTHERMIA [None]
  - PYREXIA [None]
  - RESTLESSNESS [None]
